FAERS Safety Report 14854080 (Version 1)
Quarter: 2018Q2

REPORT INFORMATION
  Report Type: Spontaneous
  Country: GB (occurrence: GB)
  Receive Date: 20180507
  Receipt Date: 20180507
  Transmission Date: 20180711
  Serious: Yes (Hospitalization)
  Sender: FDA-Public Use
  Company Number: GB-MYLANLABS-2018M1028501

PATIENT
  Sex: Female
  Weight: 2.85 kg

DRUGS (2)
  1. METHADONE [Suspect]
     Active Substance: METHADONE HYDROCHLORIDE
     Indication: PRODUCT USED FOR UNKNOWN INDICATION
     Dosage: 60 MG, QD
     Route: 064
  2. METHADONE [Suspect]
     Active Substance: METHADONE HYDROCHLORIDE
     Dosage: 20 MG, QD
     Route: 064

REACTIONS (6)
  - Drug withdrawal syndrome neonatal [Recovering/Resolving]
  - Seizure [Recovering/Resolving]
  - Psychomotor hyperactivity [Recovering/Resolving]
  - Foetal exposure during pregnancy [Recovered/Resolved]
  - Sneezing [Recovering/Resolving]
  - Poor weight gain neonatal [Recovering/Resolving]
